FAERS Safety Report 8924747 (Version 1)
Quarter: 2012Q4

REPORT INFORMATION
  Report Type: 
  Country: US (occurrence: US)
  Receive Date: 20121126
  Receipt Date: 20121126
  Transmission Date: 20130627
  Serious: No
  Sender: FDA-Public Use
  Company Number: US-PFIZER INC-2012291243

PATIENT
  Age: 63 Year
  Sex: Male
  Weight: 118 kg

DRUGS (1)
  1. TOVIAZ [Suspect]
     Indication: URINARY FREQUENCY
     Dosage: 4 mg, daily
     Dates: start: 201211, end: 201211

REACTIONS (2)
  - Headache [Recovered/Resolved]
  - Dry mouth [Recovered/Resolved]
